FAERS Safety Report 11751210 (Version 2)
Quarter: 2016Q2

REPORT INFORMATION
  Report Type: Spontaneous
  Country: US (occurrence: US)
  Receive Date: 20151118
  Receipt Date: 20160412
  Transmission Date: 20160815
  Serious: Yes (Life-Threatening, Hospitalization, Other)
  Sender: FDA-Public Use
  Company Number: US-MDT-ADR-2015-02181

PATIENT
  Age: 73 Year
  Sex: Male

DRUGS (2)
  1. MORPHINE [Suspect]
     Active Substance: MORPHINE
     Dosage: 1 MG/DAY
     Route: 037
  2. COMPOUNDED BACLOFEN [Suspect]
     Active Substance: BACLOFEN
     Dosage: 75 MCG/DAY
     Route: 037

REACTIONS (10)
  - Somnolence [Unknown]
  - Underdose [Unknown]
  - Asthenia [Unknown]
  - Muscle spasticity [Unknown]
  - Unresponsive to stimuli [Unknown]
  - Incorrect drug administration rate [Unknown]
  - Lethargy [Unknown]
  - Urinary tract infection [Unknown]
  - Depressed level of consciousness [Unknown]
  - Renal disorder [Unknown]
